FAERS Safety Report 14072913 (Version 1)
Quarter: 2017Q4

REPORT INFORMATION
  Report Type: Spontaneous
  Country: US (occurrence: None)
  Receive Date: 20171011
  Receipt Date: 20171011
  Transmission Date: 20180321
  Serious: No
  Sender: FDA-Public Use
  Company Number: None

PATIENT

DRUGS (1)
  1. FLUPHENAZINE HCL [Suspect]
     Active Substance: FLUPHENAZINE HYDROCHLORIDE

REACTIONS (1)
  - Extra dose administered [None]
